FAERS Safety Report 7523760-X (Version None)
Quarter: 2011Q2

REPORT INFORMATION
  Report Type: 
  Country: None (occurrence: None)
  Receive Date: 20110603
  Receipt Date: 20110519
  Transmission Date: 20111010
  Serious: Yes (Death, Other)
  Sender: FDA-Public Use
  Company Number: ES-WATSON-2011-07540

PATIENT
  Age: 11 Month
  Sex: Male

DRUGS (3)
  1. ALBUTEROL SULFATE [Suspect]
     Indication: ASTHMA
     Dosage: NEBULIZED CONTINUOUSLY
  2. IPRATROPIUM BROMIDE (UNKNOWN) [Suspect]
     Indication: ASTHMA
     Dosage: EVERY 2 HOURS
  3. METHYLPREDNISOLONE ACETATE [Suspect]
     Indication: ASTHMA
     Dosage: 1-2 MG/KG/ 6HR

REACTIONS (3)
  - DRUG INEFFECTIVE [None]
  - RESPIRATORY DISTRESS [None]
  - ARRHYTHMIA [None]
